FAERS Safety Report 6749401-7 (Version None)
Quarter: 2010Q2

REPORT INFORMATION
  Report Type: 
  Country: None (occurrence: None)
  Receive Date: 20100601
  Receipt Date: 20100525
  Transmission Date: 20101027
  Serious: Yes (Death, Hospitalization)
  Sender: FDA-Public Use
  Company Number: PHHO2010IT07199

PATIENT
  Sex: Male
  Weight: 65 kg

DRUGS (6)
  1. AFINITOR [Suspect]
     Indication: RENAL CANCER METASTATIC
     Dosage: 10 MG / DAY
     Route: 048
     Dates: start: 20100119, end: 20100215
  2. AFINITOR [Suspect]
     Dosage: 5 MG / DAY
     Route: 048
     Dates: start: 20100216, end: 20100218
  3. TRAMADOL [Concomitant]
  4. LEVOTHYROXINE SODIUM [Concomitant]
  5. NORVASC [Concomitant]
  6. NEBIVOLOL [Concomitant]

REACTIONS (6)
  - CARDIAC FAILURE [None]
  - DYSPNOEA [None]
  - INTERSTITIAL LUNG DISEASE [None]
  - OEDEMA PERIPHERAL [None]
  - PLEURAL EFFUSION [None]
  - PULMONARY OEDEMA [None]
